FAERS Safety Report 4540451-8 (Version None)
Quarter: 2004Q4

REPORT INFORMATION
  Report Type: 
  Country: None (occurrence: None)
  Receive Date: 20041229
  Receipt Date: 20041217
  Transmission Date: 20050328
  Serious: Yes (Other)
  Sender: FDA-Public Use
  Company Number: US-JNJFOC-20040809285

PATIENT
  Sex: Male
  Weight: 85.73 kg

DRUGS (8)
  1. REMICADE [Suspect]
     Indication: RHEUMATOID ARTHRITIS
     Route: 042
  2. METHOTREXATE [Concomitant]
     Indication: RHEUMATOID ARTHRITIS
  3. PREDNISONE [Concomitant]
     Dosage: THE PATIENT RECEIVED SEVERAL COURSES OF PREDNISONE DURING HIS LIFE.
  4. CORDARONE [Concomitant]
  5. INDERAL [Concomitant]
  6. VASERETIC [Concomitant]
  7. VASERETIC [Concomitant]
  8. LIPITOR [Concomitant]

REACTIONS (4)
  - HYPERTHYROIDISM [None]
  - LOSS OF CONSCIOUSNESS [None]
  - PALPITATIONS [None]
  - TREMOR [None]
